FAERS Safety Report 9722911 (Version 1)
Quarter: 2013Q4

REPORT INFORMATION
  Report Type: Not Available
  Country: GB (occurrence: GB)
  Receive Date: 20131202
  Receipt Date: 20131202
  Transmission Date: 20140711
  Serious: Yes (Hospitalization)
  Sender: FDA-Public Use
  Company Number: GB-ASTELLAS-2013EU010320

PATIENT
  Age: 79 Year
  Sex: Male

DRUGS (7)
  1. VESICARE [Suspect]
     Indication: POLLAKIURIA
     Dosage: 5 MG, UID/QD
     Route: 048
     Dates: start: 20131105, end: 20131107
  2. ASPIRIN [Concomitant]
     Dosage: UNK
     Route: 065
  3. BENDROFLUMETHIAZIDE [Concomitant]
     Dosage: UNK
     Route: 065
  4. FINASTERIDE [Concomitant]
     Dosage: UNK
     Route: 065
  5. LISINOPRIL [Concomitant]
     Dosage: UNK
     Route: 065
  6. OMEPRAZOLE [Concomitant]
     Dosage: UNK
     Route: 065
  7. SIMVASTATIN [Concomitant]
     Dosage: UNK
     Route: 065

REACTIONS (2)
  - Renal failure acute [Unknown]
  - Urinary retention [Recovering/Resolving]
